FAERS Safety Report 8226557-0 (Version None)
Quarter: 2012Q1

REPORT INFORMATION
  Report Type: 
  Country: None (occurrence: None)
  Receive Date: 20120322
  Receipt Date: 20120313
  Transmission Date: 20120608
  Serious: Yes (Hospitalization)
  Sender: FDA-Public Use
  Company Number: US-BIOGENIDEC-2012BI004150

PATIENT
  Age: 56 Year
  Sex: Male

DRUGS (1)
  1. TYSABRI [Suspect]
     Indication: MULTIPLE SCLEROSIS
     Route: 042
     Dates: start: 20070226, end: 20120103

REACTIONS (5)
  - URINARY TRACT INFECTION [None]
  - SINUSITIS [None]
  - LABORATORY TEST ABNORMAL [None]
  - PYREXIA [None]
  - DEPRESSION [None]
